FAERS Safety Report 13960228 (Version 1)
Quarter: 2017Q3

REPORT INFORMATION
  Report Type: Spontaneous
  Country: JP (occurrence: JP)
  Receive Date: 20170912
  Receipt Date: 20170912
  Transmission Date: 20171128
  Serious: Yes (Hospitalization)
  Sender: FDA-Public Use
  Company Number: JP-PFIZER INC-2017391156

PATIENT
  Sex: Male

DRUGS (1)
  1. MIGLITOL. [Suspect]
     Active Substance: MIGLITOL
     Dosage: 50 MG, 3X/DAY
     Route: 048

REACTIONS (2)
  - Large intestine perforation [Unknown]
  - Flatulence [Unknown]

NARRATIVE: CASE EVENT DATE: 20170815
